FAERS Safety Report 5874980-1 (Version None)
Quarter: 2008Q3

REPORT INFORMATION
  Report Type: 
  Country: None (occurrence: None)
  Receive Date: 20080908
  Receipt Date: 20080908
  Transmission Date: 20090109
  Serious: Yes (Other)
  Sender: FDA-Public Use
  Company Number: None

PATIENT
  Sex: Female
  Weight: 58.0604 kg

DRUGS (1)
  1. ENBREL [Suspect]
     Indication: RHEUMATOID ARTHRITIS
     Dosage: 25 MG TWICE WEEKLY
     Dates: start: 20040901, end: 20050613

REACTIONS (11)
  - ANXIETY [None]
  - ASTHENIA [None]
  - DIZZINESS [None]
  - FATIGUE [None]
  - HYPERSENSITIVITY [None]
  - NIGHT SWEATS [None]
  - PERICARDITIS [None]
  - PHARYNGEAL ULCERATION [None]
  - PNEUMONIA [None]
  - TONGUE ULCERATION [None]
  - UNEMPLOYMENT [None]
